FAERS Safety Report 4425288-2 (Version None)
Quarter: 2004Q3

REPORT INFORMATION
  Report Type: 
  Country: None (occurrence: None)
  Receive Date: 20040813
  Receipt Date: 20040809
  Transmission Date: 20050211
  Serious: Yes (Other)
  Sender: FDA-Public Use
  Company Number: TR-JNJFOC-20040400411

PATIENT
  Age: 56 Year
  Sex: Male

DRUGS (3)
  1. INFLIXIMAB [Suspect]
     Indication: BEHCET'S SYNDROME
     Route: 042
  2. COLCHICINE [Concomitant]
     Indication: BEHCET'S SYNDROME
     Route: 049
  3. VIOXX [Concomitant]
     Indication: BEHCET'S SYNDROME
     Route: 049

REACTIONS (8)
  - BEHCET'S SYNDROME [None]
  - COLITIS [None]
  - CONDITION AGGRAVATED [None]
  - DRUG INEFFECTIVE [None]
  - ERYTHEMA NODOSUM [None]
  - ILEITIS [None]
  - MUSCULOSKELETAL PAIN [None]
  - RECTAL HAEMORRHAGE [None]
